FAERS Safety Report 8479280-1 (Version None)
Quarter: 2012Q2

REPORT INFORMATION
  Report Type: 
  Country: None (occurrence: None)
  Receive Date: 20120629
  Receipt Date: 20120621
  Transmission Date: 20120825
  Serious: Yes (Death)
  Sender: FDA-Public Use
  Company Number: US-GLAXOSMITHKLINE-A0982620A

PATIENT
  Age: 45 Year
  Sex: Female

DRUGS (6)
  1. POTASSIUM ACETATE [Concomitant]
  2. LUPRON [Concomitant]
  3. LORTAB [Concomitant]
  4. KEPPRA [Concomitant]
  5. HYCAMTIN [Suspect]
     Indication: LUNG NEOPLASM MALIGNANT
     Dosage: 4MG PER DAY
     Route: 048
     Dates: start: 20120512, end: 20120620
  6. UNKNOWN [Concomitant]

REACTIONS (1)
  - DEATH [None]
